FAERS Safety Report 21421333 (Version 1)
Quarter: 2022Q4

REPORT INFORMATION
  Report Type: Spontaneous
  Country: LB (occurrence: LB)
  Receive Date: 20221007
  Receipt Date: 20221007
  Transmission Date: 20230112
  Serious: Yes (Hospitalization, Other)
  Sender: FDA-Public Use
  Company Number: LB-ASTELLAS-2022US032725

PATIENT
  Age: 81 Year
  Sex: Male

DRUGS (3)
  1. XTANDI [Suspect]
     Active Substance: ENZALUTAMIDE
     Indication: Prostate cancer
     Route: 048
     Dates: start: 2020, end: 202201
  2. XTANDI [Suspect]
     Active Substance: ENZALUTAMIDE
     Dosage: 4 DF, ONCE DAILY (RESTARTED)
     Route: 048
     Dates: start: 202207, end: 202209
  3. ZOLADEX [Concomitant]
     Active Substance: GOSERELIN ACETATE
     Indication: Product used for unknown indication
     Dosage: UNK UNK, MONTHLY (ONCE EVERY MONTH)
     Route: 065

REACTIONS (6)
  - Gastrointestinal inflammation [Unknown]
  - Nephrolithiasis [Unknown]
  - Prostatic specific antigen increased [Not Recovered/Not Resolved]
  - Pyrexia [Not Recovered/Not Resolved]
  - Decreased appetite [Not Recovered/Not Resolved]
  - Product availability issue [Unknown]

NARRATIVE: CASE EVENT DATE: 20220101
